FAERS Safety Report 21246159 (Version 1)
Quarter: 2022Q3

REPORT INFORMATION
  Report Type: Spontaneous
  Country: FR (occurrence: FR)
  Receive Date: 20220824
  Receipt Date: 20220824
  Transmission Date: 20221027
  Serious: Yes (Hospitalization)
  Sender: FDA-Public Use
  Company Number: None

PATIENT
  Age: 83 Year
  Sex: Male

DRUGS (6)
  1. IRBESARTAN [Interacting]
     Active Substance: IRBESARTAN
     Indication: Hypertension
     Dosage: LC, IRBESARTAN (CHLORHYDRATE D), THERAPY START DATE: NASK, UNIT DOSE: 300 MG, FREQUENCY TIME : 1 DAY
     Dates: end: 20220128
  2. LERCANIDIPINE HYDROCHLORIDE [Interacting]
     Active Substance: LERCANIDIPINE HYDROCHLORIDE
     Indication: Hypertension
     Dosage: LC, CHLORHYDRATE DE LERCANIDIPINE, UNIT DOSE: 10 MG, FREQUENCY TIME : 1 DAY
  3. TAMSULOSIN HYDROCHLORIDE [Interacting]
     Active Substance: TAMSULOSIN HYDROCHLORIDE
     Indication: Product used for unknown indication
     Dosage: LC, UNIT DOSE: 0.4 MG, FREQUENCY TIME : 1 DAY
  4. PRAZOSIN [Interacting]
     Active Substance: PRAZOSIN
     Indication: Hypertension
     Dosage: LC, FREQUENCY TIME : 1 DAY, UNIT DOSE: 5 MG
  5. KERLONE [Interacting]
     Active Substance: BETAXOLOL HYDROCHLORIDE
     Indication: Hypertension
     Dosage: LC, THERAPY START DATE : NASK
     Dates: end: 20220128
  6. ENALAPRIL MALEATE [Interacting]
     Active Substance: ENALAPRIL MALEATE
     Indication: Hypertension
     Dosage: LC, UNIT DOSE: 20 MG, THERAPY START DATE : NASK, FREQUENCY TIME : 1 DAY
     Dates: end: 20220128

REACTIONS (4)
  - Bradycardia [Recovering/Resolving]
  - Cardiac failure [Recovering/Resolving]
  - Syncope [Recovered/Resolved]
  - Drug interaction [Unknown]

NARRATIVE: CASE EVENT DATE: 20220127
